FAERS Safety Report 8350944-3 (Version None)
Quarter: 2012Q2

REPORT INFORMATION
  Report Type: 
  Country: None (occurrence: None)
  Receive Date: 20120510
  Receipt Date: 20120425
  Transmission Date: 20120825
  Serious: Yes (Hospitalization, Disabling)
  Sender: FDA-Public Use
  Company Number: DE-BRISTOL-MYERS SQUIBB COMPANY-16473571

PATIENT
  Age: 72 Year
  Sex: Female

DRUGS (4)
  1. BISOPROLOL FUMARATE [Concomitant]
  2. PHENPROCOUMON [Concomitant]
  3. IRBESARTAN AND HYDROCHLOROTHIAZIDE [Suspect]
     Dosage: 1DF=1X300/25 MG PER DAY
     Route: 048
     Dates: end: 20120322
  4. LEVOTHYROXINE SODIUM+POTASSIUM IODIDE [Concomitant]

REACTIONS (5)
  - DIZZINESS [None]
  - HYPERHIDROSIS [None]
  - BLOOD URIC ACID INCREASED [None]
  - DYSPNOEA [None]
  - NAUSEA [None]
